FAERS Safety Report 18125605 (Version 1)
Quarter: 2020Q3

REPORT INFORMATION
  Report Type: Spontaneous
  Country: US (occurrence: US)
  Receive Date: 20200807
  Receipt Date: 20200807
  Transmission Date: 20201103
  Serious: No
  Sender: FDA-Public Use
  Company Number: US-ROCHE-2400369

PATIENT
  Sex: Male

DRUGS (1)
  1. PERJETA [Suspect]
     Active Substance: PERTUZUMAB
     Indication: COLON CANCER
     Dosage: UNKNOWN
     Route: 065

REACTIONS (3)
  - Muscle spasms [Unknown]
  - Intentional product use issue [Unknown]
  - Off label use [Unknown]
